FAERS Safety Report 8154496-2 (Version None)
Quarter: 2012Q1

REPORT INFORMATION
  Report Type: 
  Country: None (occurrence: None)
  Receive Date: 20120215
  Receipt Date: 20111019
  Transmission Date: 20120608
  Serious: Yes (Other)
  Sender: FDA-Public Use
  Company Number: AEUSA201100292

PATIENT
  Age: 60 Year
  Sex: Male
  Weight: 77.6 kg

DRUGS (7)
  1. PHYTONADIONE [Suspect]
     Indication: EXTRADURAL HAEMATOMA
     Dosage: 5 MG; TOTAL; IV
     Route: 042
     Dates: start: 20110527, end: 20110527
  2. PHYTONADIONE [Suspect]
     Indication: INTERNATIONAL NORMALISED RATIO INCREASED
     Dosage: 5 MG; TOTAL; IV
     Route: 042
     Dates: start: 20110527, end: 20110527
  3. PROFILNINE SD [Suspect]
     Indication: INTERNATIONAL NORMALISED RATIO INCREASED
     Dosage: 3530 IU; TOTAL; IV
     Route: 042
     Dates: start: 20110527, end: 20110527
  4. PROFILNINE SD [Suspect]
     Indication: EXTRADURAL HAEMATOMA
     Dosage: 3530 IU; TOTAL; IV
     Route: 042
     Dates: start: 20110527, end: 20110527
  5. WARFARIN SODIUM [Concomitant]
  6. FACTOR VIIA [Suspect]
     Indication: INTERNATIONAL NORMALISED RATIO INCREASED
     Dosage: 1 MG; TOTAL; IV
     Route: 042
     Dates: start: 20110527, end: 20110527
  7. FACTOR VIIA [Suspect]
     Indication: EXTRADURAL HAEMATOMA
     Dosage: 1 MG; TOTAL; IV
     Route: 042
     Dates: start: 20110527, end: 20110527

REACTIONS (1)
  - DEEP VEIN THROMBOSIS [None]
